FAERS Safety Report 6230545-3 (Version None)
Quarter: 2009Q2

REPORT INFORMATION
  Report Type: 
  Country: None (occurrence: None)
  Receive Date: 20090615
  Receipt Date: 20090409
  Transmission Date: 20091009
  Serious: No
  Sender: FDA-Public Use
  Company Number: US-ABBOTT-09P-163-0567688-00

PATIENT
  Sex: Male
  Weight: 94.886 kg

DRUGS (2)
  1. TRILIPIX [Suspect]
     Indication: BLOOD TRIGLYCERIDES INCREASED
     Route: 048
     Dates: start: 20090218, end: 20090408
  2. TRILIPIX [Suspect]
     Indication: DYSLIPIDAEMIA

REACTIONS (3)
  - BLOOD TRIGLYCERIDES INCREASED [None]
  - HIGH DENSITY LIPOPROTEIN DECREASED [None]
  - LOW DENSITY LIPOPROTEIN INCREASED [None]
